FAERS Safety Report 13603325 (Version 2)
Quarter: 2017Q3

REPORT INFORMATION
  Report Type: Report from Study
  Country: JP (occurrence: JP)
  Receive Date: 20170601
  Receipt Date: 20170705
  Transmission Date: 20171127
  Serious: Yes (Hospitalization)
  Sender: FDA-Public Use
  Company Number: JP-DSJP-DSJ-2017-116506

PATIENT

DRUGS (18)
  1. BAYASPIRIN [Concomitant]
     Active Substance: ASPIRIN
     Dosage: 100MG/DAY
     Route: 048
     Dates: end: 20150730
  2. NEXIUM [Concomitant]
     Active Substance: ESOMEPRAZOLE MAGNESIUM
     Dosage: 20MG/DAY
     Route: 048
     Dates: start: 20160806
  3. CELECOX [Concomitant]
     Active Substance: CELECOXIB
     Dosage: 200MG/DAY
     Route: 048
     Dates: start: 20160418, end: 20160805
  4. POLARAMINE [Concomitant]
     Active Substance: DEXCHLORPHENIRAMINE MALEATE
     Dosage: 5MG/DAY
     Route: 048
     Dates: start: 20170513
  5. EDOXABAN [Suspect]
     Active Substance: EDOXABAN TOSYLATE
     Indication: ATRIAL FIBRILLATION
     Dosage: 30 MG, QD
     Route: 048
     Dates: start: 20150513
  6. AMLODIN [Concomitant]
     Active Substance: AMLODIPINE BESYLATE
     Dosage: 2.5MG/DAY
     Route: 048
     Dates: start: 20160806
  7. ALLORIN [Concomitant]
     Dosage: 100MG/DAY
     Route: 048
  8. AZILVA [Concomitant]
     Active Substance: AZILSARTAN KAMEDOXOMIL
     Dosage: 20MG/DAY
     Route: 048
     Dates: end: 20160805
  9. TAKECAB [Concomitant]
     Active Substance: VONOPRAZAN FUMURATE
     Dosage: 20MG/DAY
     Route: 048
     Dates: start: 20160420, end: 20160805
  10. TRICHLORMETHIAZIDE [Concomitant]
     Active Substance: TRICHLORMETHIAZIDE
     Dosage: 2MG/DAY
     Route: 048
     Dates: start: 20160806
  11. NIZATORIC [Concomitant]
     Dosage: 150MG/DAY
     Route: 048
     Dates: end: 20160609
  12. NEOXY [Concomitant]
     Active Substance: OXYBUTYNIN CHLORIDE
     Dosage: 73.5MG/DAY
     Route: 062
     Dates: end: 20160805
  13. STROCAIN                           /00130301/ [Concomitant]
     Dosage: 3DF/DAY
     Route: 048
     Dates: start: 20160420, end: 20160805
  14. ARTIST [Concomitant]
     Active Substance: CARVEDILOL
     Dosage: 10MG/DAY
     Route: 048
  15. BAYASPIRIN [Concomitant]
     Active Substance: ASPIRIN
     Dosage: 100MG/DAY
     Route: 048
     Dates: start: 20150808, end: 20160115
  16. AMLODIN [Concomitant]
     Active Substance: AMLODIPINE BESYLATE
     Dosage: 5MG/DAY
     Route: 048
     Dates: end: 20160805
  17. FUROSEMIDE. [Concomitant]
     Active Substance: FUROSEMIDE
     Dosage: 20MG/DAY
     Route: 048
     Dates: start: 20160806
  18. MINOFIT [Concomitant]
     Active Substance: CYSTEINE\GLYCINE\GLYCYRRHIZIN
     Dosage: 20ML/DAY
     Route: 042
     Dates: start: 20170513

REACTIONS (4)
  - Renal neoplasm [Not Recovered/Not Resolved]
  - Peripheral arterial occlusive disease [Not Recovered/Not Resolved]
  - Pruritus [Recovering/Resolving]
  - Cardiac failure [Recovering/Resolving]

NARRATIVE: CASE EVENT DATE: 20160805
